FAERS Safety Report 18947751 (Version 4)
Quarter: 2021Q2

REPORT INFORMATION
  Report Type: Report from Study
  Country: US (occurrence: US)
  Receive Date: 20210226
  Receipt Date: 20210510
  Transmission Date: 20210717
  Serious: Yes (Hospitalization, Other)
  Sender: FDA-Public Use
  Company Number: US-BRISTOL-MYERS SQUIBB COMPANY-BMS-2021-002270

PATIENT
  Age: 59 Year
  Sex: Male
  Weight: 54.4 kg

DRUGS (7)
  1. CISPLATIN. [Suspect]
     Active Substance: CISPLATIN
     Dosage: 100 MILLIGRAM/SQ. METER, Q3WK
     Route: 065
  2. NIVOLUMAB [Suspect]
     Active Substance: NIVOLUMAB
     Dosage: 360 MILLIGRAM, Q3WK
     Route: 065
     Dates: start: 20200925, end: 20201113
  3. CARBOPLATIN. [Suspect]
     Active Substance: CARBOPLATIN
     Indication: HEAD AND NECK CANCER
     Dosage: UNK, Q3WK
     Route: 065
     Dates: start: 202009, end: 20201127
  4. PACLITAXEL. [Suspect]
     Active Substance: PACLITAXEL
     Indication: HEAD AND NECK CANCER
     Dosage: 100 MILLIGRAM/SQ. METER, QWK
     Route: 065
     Dates: start: 20200925, end: 20201127
  5. CISPLATIN. [Suspect]
     Active Substance: CISPLATIN
     Indication: HEAD AND NECK CANCER
     Dosage: 100 MILLIGRAM/SQ. METER, Q3WK
     Route: 065
     Dates: start: 20201207, end: 20210125
  6. NIVOLUMAB [Suspect]
     Active Substance: NIVOLUMAB
     Indication: HEAD AND NECK CANCER
     Dosage: 360 MILLIGRAM, Q3WK
     Route: 065
     Dates: start: 202009, end: 20201127
  7. CARBOPLATIN. [Suspect]
     Active Substance: CARBOPLATIN
     Dosage: 499.5 MILLIGRAM, Q3WK
     Route: 065
     Dates: start: 20200925, end: 20201113

REACTIONS (7)
  - Urinary tract infection [Unknown]
  - Alcoholism [Unknown]
  - Intervertebral discitis [Unknown]
  - Alcohol withdrawal syndrome [Unknown]
  - Cardiac failure congestive [Unknown]
  - Immune-mediated lung disease [Unknown]
  - Acute kidney injury [Recovered/Resolved]

NARRATIVE: CASE EVENT DATE: 20210109
